FAERS Safety Report 9722963 (Version 1)
Quarter: 2013Q4

REPORT INFORMATION
  Report Type: Spontaneous
  Country: US (occurrence: None)
  Receive Date: 20131126
  Receipt Date: 20131126
  Transmission Date: 20140711
  Serious: Yes (Other)
  Sender: FDA-Public Use
  Company Number: JPI-P-016361

PATIENT
  Age: 40 Year
  Sex: Female

DRUGS (10)
  1. XYREM (SODIUM OXYBATE) ORAL SOLUTION, 500MG/ML [Suspect]
     Indication: NARCOLEPSY
     Route: 048
     Dates: start: 20110720, end: 20110720
  2. XYREM (SODIUM OXYBATE) ORAL SOLUTION, 500MG/ML [Suspect]
     Indication: CATAPLEXY
     Route: 048
     Dates: start: 20110720, end: 20110720
  3. PROVIGIL [Suspect]
     Indication: NARCOLEPSY
     Route: 048
  4. PROVIGIL [Suspect]
     Indication: HYPERSOMNIA
     Route: 048
  5. SPIRONOLACTONE (SPIRONOLACTONE) [Concomitant]
  6. VITAMINS (ASCORBIC ACID) [Concomitant]
  7. MELATONIN (MELATONIN) [Concomitant]
  8. ROGAINE (MINOXIDIL) [Concomitant]
  9. BONINE (MACLOZINE HYDROCHLORIDE) [Concomitant]
  10. ABREVA (DOCOSANOL) [Concomitant]

REACTIONS (11)
  - Gastrointestinal disorder [None]
  - Surgery [None]
  - Heart rate irregular [None]
  - Vertigo [None]
  - Dry eye [None]
  - Weight decreased [None]
  - Dizziness [None]
  - Nausea [None]
  - Muscular weakness [None]
  - Stress [None]
  - Abnormal dreams [None]
